FAERS Safety Report 5144394-0 (Version None)
Quarter: 2006Q4

REPORT INFORMATION
  Report Type: 
  Country: None (occurrence: None)
  Receive Date: 20061030
  Receipt Date: 20061018
  Transmission Date: 20070319
  Serious: Yes (Other)
  Sender: FDA-Public Use
  Company Number: 2006089317

PATIENT
  Sex: Male
  Weight: 73.4827 kg

DRUGS (1)
  1. LIPITOR [Suspect]
     Indication: BLOOD CHOLESTEROL INCREASED
     Dosage: 10 MG (10 MG, 1 IN 1 D)
     Dates: start: 19960101, end: 20050401

REACTIONS (7)
  - AMNESIA [None]
  - CONDITION AGGRAVATED [None]
  - DRUG EFFECT DECREASED [None]
  - ERECTILE DYSFUNCTION [None]
  - GOUT [None]
  - NEUROPATHY PERIPHERAL [None]
  - TINNITUS [None]
